FAERS Safety Report 11445382 (Version 1)
Quarter: 2015Q3

REPORT INFORMATION
  Report Type: Spontaneous
  Country: US (occurrence: None)
  Receive Date: 20150901
  Receipt Date: 20150901
  Transmission Date: 20151125
  Serious: No
  Sender: FDA-Public Use
  Company Number: None

PATIENT
  Age: 43 Year
  Sex: Female
  Weight: 102.06 kg

DRUGS (6)
  1. CYMBALTA [Suspect]
     Active Substance: DULOXETINE HYDROCHLORIDE
     Indication: ANTIDEPRESSANT THERAPY
     Dosage: TAKEN BY MOUTH
     Route: 048
  2. MOBIC [Concomitant]
     Active Substance: MELOXICAM
  3. CYMBALTA [Suspect]
     Active Substance: DULOXETINE HYDROCHLORIDE
     Indication: ARTHRITIS
     Dosage: TAKEN BY MOUTH
     Route: 048
  4. CYMBALTA [Suspect]
     Active Substance: DULOXETINE HYDROCHLORIDE
     Indication: PAIN MANAGEMENT
     Dosage: TAKEN BY MOUTH
     Route: 048
  5. CYMBALTA [Concomitant]
     Active Substance: DULOXETINE HYDROCHLORIDE
  6. OCT MULTIVITAMIN [Concomitant]

REACTIONS (19)
  - Influenza [None]
  - Headache [None]
  - Tinnitus [None]
  - Dizziness [None]
  - Fatigue [None]
  - Hyperhidrosis [None]
  - Presyncope [None]
  - Tremor [None]
  - Vision blurred [None]
  - Malaise [None]
  - Drug withdrawal syndrome [None]
  - Sinus disorder [None]
  - Nausea [None]
  - Night sweats [None]
  - Ocular discomfort [None]
  - Paraesthesia [None]
  - Diarrhoea [None]
  - Asthenia [None]
  - Eye pain [None]
